FAERS Safety Report 15665931 (Version 19)
Quarter: 2020Q2

REPORT INFORMATION
  Report Type: Report from Study
  Country: DE (occurrence: DE)
  Receive Date: 20181128
  Receipt Date: 20200526
  Transmission Date: 20200713
  Serious: Yes (Other)
  Sender: FDA-Public Use
  Company Number: PHHY2018DE165567

PATIENT
  Sex: Female
  Weight: 53 kg

DRUGS (22)
  1. KISQALI [Suspect]
     Active Substance: RIBOCICLIB
     Indication: BREAST CANCER METASTATIC
     Dosage: 600 MG, QD (21 DAYS ON /7 DAYS OFF)
     Route: 048
     Dates: start: 20180824, end: 20180906
  2. KISQALI [Suspect]
     Active Substance: RIBOCICLIB
     Dosage: 400 MG (21 DAYS ON /7 DAYS OFF), UNK
     Route: 048
     Dates: start: 20181221, end: 20190117
  3. KISQALI [Suspect]
     Active Substance: RIBOCICLIB
     Dosage: 400 MG, QD (21 DAYS ON /7 DAYS OFF)
     Route: 048
     Dates: start: 20190517, end: 20190613
  4. KISQALI [Suspect]
     Active Substance: RIBOCICLIB
     Dosage: 400 MG, QD (SCHEME: INTAKE FOR 21 DAYS,  7 DAYS OF  PAUSE)
     Route: 048
     Dates: start: 20191206, end: 20200102
  5. KISQALI [Suspect]
     Active Substance: RIBOCICLIB
     Dosage: 400 MG, QD (SCHEME: INTAKE FOR 21 DAYS,  7 DAYS OF  PAUSE)
     Route: 048
     Dates: start: 20200131, end: 20200227
  6. KISQALI [Suspect]
     Active Substance: RIBOCICLIB
     Dosage: 400 MG, QD (21 DAYS ON /7 DAYS OFF)
     Route: 048
     Dates: start: 20180907, end: 20180920
  7. KISQALI [Suspect]
     Active Substance: RIBOCICLIB
     Dosage: 400 MG, QD (21 DAYS ON /7 DAYS OFF)
     Route: 048
     Dates: start: 20190222, end: 20190321
  8. KISQALI [Suspect]
     Active Substance: RIBOCICLIB
     Dosage: 400 MG, QD (21 DAYS ON /7 DAYS OFF)
     Route: 048
     Dates: start: 20190322, end: 20190418
  9. KISQALI [Suspect]
     Active Substance: RIBOCICLIB
     Dosage: 400 MG, QD (21 DAYS ON /7 DAYS OFF)
     Route: 048
     Dates: start: 20190712, end: 20190808
  10. KISQALI [Suspect]
     Active Substance: RIBOCICLIB
     Dosage: 400 MG, QD (SCHEME: INTAKE FOR 21 DAYS,  7 DAYS OF  PAUSE)
     Route: 048
     Dates: start: 20191101, end: 20191128
  11. LETROZOLE. [Suspect]
     Active Substance: LETROZOLE
     Indication: BREAST CANCER METASTATIC
     Dosage: 2.5 MG, QD
     Route: 048
     Dates: start: 20180824
  12. KISQALI [Suspect]
     Active Substance: RIBOCICLIB
     Dosage: 400 MG, QD (21 DAYS ON /7 DAYS OFF)
     Route: 048
     Dates: start: 20190118, end: 20190214
  13. KISQALI [Suspect]
     Active Substance: RIBOCICLIB
     Dosage: 400 MG, QD (21 DAYS ON /7 DAYS OFF)
     Route: 048
     Dates: start: 20190419, end: 20190516
  14. KISQALI [Suspect]
     Active Substance: RIBOCICLIB
     Dosage: 400 MG, QD (21 DAYS ON /7 DAYS OFF)
     Route: 048
     Dates: start: 20190614, end: 20190711
  15. KISQALI [Suspect]
     Active Substance: RIBOCICLIB
     Dosage: 400 MG, QD (SCHEME: INTAKE FOR 21 DAYS,  7 DAYS OF  PAUSE)
     Route: 048
     Dates: start: 20200103, end: 20200130
  16. KISQALI [Suspect]
     Active Substance: RIBOCICLIB
     Dosage: 400 MG, QD (21 DAYS ON /7 DAYS OFF)
     Route: 048
     Dates: start: 20180921, end: 20181018
  17. KISQALI [Suspect]
     Active Substance: RIBOCICLIB
     Dosage: 400 MG (16 DAYS ON /7 DAYS OFF), UNK
     Route: 048
     Dates: start: 20181121, end: 20181213
  18. KISQALI [Suspect]
     Active Substance: RIBOCICLIB
     Dosage: 400 MG, QD (21 DAYS ON /7 DAYS OFF)
     Route: 048
     Dates: start: 20190906, end: 20191003
  19. KISQALI [Suspect]
     Active Substance: RIBOCICLIB
     Dosage: 400 MG, QD (SCHEME: INTAKE FOR 21 DAYS,  7 DAYS OF  PAUSE)
     Route: 048
     Dates: start: 20200228, end: 20200326
  20. KISQALI [Suspect]
     Active Substance: RIBOCICLIB
     Dosage: 400 MG, QD (21 DAYS ON /7 DAYS OFF)
     Route: 048
     Dates: start: 20181019, end: 20181115
  21. KISQALI [Suspect]
     Active Substance: RIBOCICLIB
     Dosage: 400 MG, QD (SCHEME: INTAKE FOR 21 DAYS,  7 DAYS OF  PAUSE)
     Route: 048
     Dates: start: 20191004, end: 20191031
  22. KISQALI [Suspect]
     Active Substance: RIBOCICLIB
     Dosage: 400 MG, QD (21 DAYS ON /7 DAYS OFF)
     Route: 048
     Dates: start: 20190816, end: 20190905

REACTIONS (12)
  - Pericardial effusion [Recovered/Resolved]
  - Urinary tract infection [Recovered/Resolved]
  - Neutropenia [Recovered/Resolved]
  - Neutropenia [Recovered/Resolved]
  - Basophil count increased [Unknown]
  - Leukopenia [Recovered/Resolved]
  - Nasopharyngitis [Recovered/Resolved]
  - Leukopenia [Recovered/Resolved]
  - Neutropenia [Recovered/Resolved]
  - Haemoglobin decreased [Unknown]
  - Peripheral swelling [Recovered/Resolved]
  - Memory impairment [Not Recovered/Not Resolved]

NARRATIVE: CASE EVENT DATE: 20181116
